FAERS Safety Report 6271961-3 (Version None)
Quarter: 2009Q3

REPORT INFORMATION
  Report Type: 
  Country: None (occurrence: None)
  Receive Date: 20090717
  Receipt Date: 20090709
  Transmission Date: 20100115
  Serious: No
  Sender: FDA-Public Use
  Company Number: DK-ASTRAZENECA-2009SE04507

PATIENT
  Age: 9990 Day
  Sex: Female
  Weight: 60 kg

DRUGS (3)
  1. SEROQUEL [Suspect]
     Indication: INSOMNIA
     Dosage: 25 MILLIGRAM(S)
     Route: 048
     Dates: end: 20090121
  2. LYRICA [Concomitant]
     Route: 048
  3. EFFEXOR [Concomitant]
     Route: 048

REACTIONS (2)
  - LEUKOPENIA [None]
  - NEUTROPENIA [None]
